FAERS Safety Report 7082807-8 (Version None)
Quarter: 2010Q4

REPORT INFORMATION
  Report Type: 
  Country: None (occurrence: None)
  Receive Date: 20101001
  Receipt Date: 20100720
  Transmission Date: 20110411
  Serious: No
  Sender: FDA-Public Use
  Company Number: 1000015238

PATIENT
  Age: 78 Year

DRUGS (6)
  1. BYSTOLIC [Suspect]
     Indication: HYPERTENSION
     Dosage: 5 MG (5MG, 1 IN 1 D), ORAL
     Route: 048
     Dates: start: 20100201
  2. TRIAMTERENE AND HYDROCHLOROTHIAZIDE [Suspect]
     Indication: POLYURIA
     Dates: start: 20100201
  3. DIGOXIN [Concomitant]
  4. DILTIAZEM [Concomitant]
  5. FOSAMAX [Concomitant]
  6. FISH OIL [Concomitant]

REACTIONS (1)
  - BLOOD TRIGLYCERIDES INCREASED [None]
